FAERS Safety Report 25858440 (Version 1)
Quarter: 2025Q3

REPORT INFORMATION
  Report Type: Spontaneous
  Country: JP (occurrence: JP)
  Receive Date: 20250929
  Receipt Date: 20250929
  Transmission Date: 20251020
  Serious: Yes (Other)
  Sender: INSMED
  Company Number: JP-INSMED, INC.-2025-03862-JP

PATIENT
  Age: 89 Year
  Sex: Female

DRUGS (1)
  1. ARIKAYCE [Suspect]
     Active Substance: AMIKACIN
     Indication: Mycobacterium kansasii infection
     Route: 055

REACTIONS (4)
  - Pneumonia serratia [Unknown]
  - Aspergillus test positive [Unknown]
  - Off label use [Unknown]
  - Device maintenance issue [Unknown]
